FAERS Safety Report 4876356-2 (Version None)
Quarter: 2005Q4

REPORT INFORMATION
  Report Type: 
  Country: None (occurrence: None)
  Receive Date: 20051206
  Receipt Date: 20050804
  Transmission Date: 20060501
  Serious: No
  Sender: FDA-Public Use
  Company Number: USA0508104691

PATIENT
  Age: 43 Year
  Sex: Female

DRUGS (3)
  1. CYMBALTA [Suspect]
     Indication: MAJOR DEPRESSION
     Dosage: 60 MG DAY
  2. TOPAMAX [Concomitant]
  3. EFFEXOR [Concomitant]

REACTIONS (3)
  - HYPOAESTHESIA [None]
  - LIBIDO DECREASED [None]
  - PARAESTHESIA [None]
